FAERS Safety Report 6522219-6 (Version None)
Quarter: 2009Q4

REPORT INFORMATION
  Report Type: 
  Country: None (occurrence: None)
  Receive Date: 20091230
  Receipt Date: 20091217
  Transmission Date: 20100525
  Serious: Yes (Disabling)
  Sender: FDA-Public Use
  Company Number: DK-BAYER-200943136GPV

PATIENT
  Age: 15 Year
  Sex: Female
  Weight: 63 kg

DRUGS (1)
  1. YASMIN [Suspect]
     Indication: CONTRACEPTION
     Route: 048
     Dates: start: 20061130, end: 20090930

REACTIONS (4)
  - ANTISOCIAL BEHAVIOUR [None]
  - DEPRESSED MOOD [None]
  - DYSPHORIA [None]
  - HALLUCINATION [None]
